FAERS Safety Report 19284313 (Version 1)
Quarter: 2021Q2

REPORT INFORMATION
  Report Type: Spontaneous
  Country: PL (occurrence: PL)
  Receive Date: 20210521
  Receipt Date: 20210521
  Transmission Date: 20210717
  Serious: Yes (Other)
  Sender: FDA-Public Use
  Company Number: PL-PRA-000005

PATIENT
  Age: 6 Year

DRUGS (2)
  1. METHYLPREDNISOLONE. [Suspect]
     Active Substance: METHYLPREDNISOLONE
     Indication: PROPHYLAXIS AGAINST GRAFT VERSUS HOST DISEASE
     Route: 065
  2. CICLOSPORIN [Suspect]
     Active Substance: CYCLOSPORINE
     Indication: PROPHYLAXIS AGAINST GRAFT VERSUS HOST DISEASE
     Route: 065

REACTIONS (4)
  - Epstein-Barr virus infection reactivation [Recovered/Resolved]
  - Product use in unapproved indication [Unknown]
  - Cytomegalovirus infection reactivation [Recovered/Resolved]
  - Polyomavirus viraemia [Unknown]
